FAERS Safety Report 15043865 (Version 1)
Quarter: 2018Q2

REPORT INFORMATION
  Report Type: Spontaneous
  Country: US (occurrence: US)
  Receive Date: 20180531
  Receipt Date: 20180531
  Transmission Date: 20180711
  Serious: No
  Sender: FDA-Public Use
  Company Number: None

PATIENT
  Age: 84 Year
  Sex: Male

DRUGS (14)
  1. ZYTIGA [Suspect]
     Active Substance: ABIRATERONE ACETATE
     Indication: PROSTATE CANCER
     Route: 048
     Dates: start: 20171018
  2. TAMSULOSIN [Concomitant]
     Active Substance: TAMSULOSIN
  3. PRAVASTATIN. [Concomitant]
     Active Substance: PRAVASTATIN
  4. LUPRON [Concomitant]
     Active Substance: LEUPROLIDE ACETATE
  5. FUROSEMIDE. [Concomitant]
     Active Substance: FUROSEMIDE
  6. PREDNISONE. [Concomitant]
     Active Substance: PREDNISONE
  7. IRON [Concomitant]
     Active Substance: IRON
  8. DEXILANT [Concomitant]
     Active Substance: DEXLANSOPRAZOLE
  9. COLCHICINE. [Concomitant]
     Active Substance: COLCHICINE
  10. ALLOPRUINOL [Concomitant]
  11. VALSARTAN. [Concomitant]
     Active Substance: VALSARTAN
  12. XGEVA [Concomitant]
     Active Substance: DENOSUMAB
  13. CALACIUM [Concomitant]
  14. AMLODIPINE BESYLATE. [Concomitant]
     Active Substance: AMLODIPINE BESYLATE

REACTIONS (3)
  - Fatigue [None]
  - Hot flush [None]
  - Hyperhidrosis [None]
